FAERS Safety Report 5340274-6 (Version None)
Quarter: 2007Q2

REPORT INFORMATION
  Report Type: 
  Country: None (occurrence: None)
  Receive Date: 20070405
  Receipt Date: 20070108
  Transmission Date: 20071010
  Serious: Yes (Hospitalization)
  Sender: FDA-Public Use
  Company Number: US200611003653

PATIENT
  Age: 52 Year
  Sex: Female

DRUGS (8)
  1. CYMBALTA [Suspect]
     Indication: MAJOR DEPRESSION
     Dosage: 30 MG, 2/D
     Dates: start: 20060501
  2. ZYPREXA [Suspect]
     Indication: ANXIETY
     Dosage: 5 MG, EACH EVENING
     Dates: start: 20061101
  3. FLUOXETINE [Concomitant]
  4. WELLBUTRIN [Concomitant]
  5. CLONAZEPAM [Concomitant]
  6. TRAZODONE HCL [Concomitant]
  7. PEG 3350 AND ELECTROLYTES FOR ORAL SOLUTION (MACROGOL, POTASSIUM CHLOR [Concomitant]
  8. ZELNORM /USA/ (TEGASEROD) [Concomitant]

REACTIONS (5)
  - CONFUSIONAL STATE [None]
  - DEPRESSION [None]
  - DYSGRAPHIA [None]
  - LOSS OF EMPLOYMENT [None]
  - SUICIDAL IDEATION [None]
